FAERS Safety Report 15120030 (Version 1)
Quarter: 2018Q3

REPORT INFORMATION
  Report Type: Spontaneous
  Country: US (occurrence: US)
  Receive Date: 20180613
  Receipt Date: 20180613
  Transmission Date: 20181010
  Serious: Yes (Disabling)
  Sender: FDA-Public Use
  Company Number: None

PATIENT
  Age: 41 Year
  Sex: Female
  Weight: 84.37 kg

DRUGS (1)
  1. MIRENA [Suspect]
     Active Substance: LEVONORGESTREL

REACTIONS (16)
  - Weight increased [None]
  - Depression [None]
  - Mood swings [None]
  - Abdominal distension [None]
  - Sexual dysfunction [None]
  - Dental caries [None]
  - Alopecia [None]
  - Fatigue [None]
  - Polycystic ovaries [None]
  - Acne [None]
  - Irritability [None]
  - Hair growth abnormal [None]
  - Blood insulin increased [None]
  - Palpitations [None]
  - Blood parathyroid hormone increased [None]
  - Fluid retention [None]

NARRATIVE: CASE EVENT DATE: 20180613
